FAERS Safety Report 10790224 (Version 1)
Quarter: 2015Q1

REPORT INFORMATION
  Report Type: Spontaneous
  Country: US (occurrence: US)
  Receive Date: 20150212
  Receipt Date: 20150212
  Transmission Date: 20150721
  Serious: No
  Sender: FDA-Public Use
  Company Number: US-GLAXOSMITHKLINE-A1071448A

PATIENT

DRUGS (2)
  1. VENTOLIN [Suspect]
     Active Substance: ALBUTEROL SULFATE
     Indication: ASTHMA
     Dosage: UNKNOWN
     Route: 065
     Dates: start: 20110613
  2. FLOVENT [Suspect]
     Active Substance: FLUTICASONE PROPIONATE
     Indication: PRODUCT USED FOR UNKNOWN INDICATION
     Dosage: UNKNOWN
     Route: 055
     Dates: start: 20110527

REACTIONS (3)
  - Thyroid neoplasm [Unknown]
  - Vocal cord thickening [Unknown]
  - Dysphonia [Unknown]
